FAERS Safety Report 21776528 (Version 1)
Quarter: 2022Q4

REPORT INFORMATION
  Report Type: Spontaneous
  Country: US (occurrence: US)
  Receive Date: 20221226
  Receipt Date: 20221226
  Transmission Date: 20230112
  Serious: No
  Sender: FDA-Public Use
  Company Number: US-SA-SAC20221214000129

PATIENT
  Age: 70 Year
  Sex: Male

DRUGS (5)
  1. FLOMAX [Suspect]
     Active Substance: TAMSULOSIN HYDROCHLORIDE
     Indication: Prostate cancer
     Dosage: UNK UNK, QD
     Route: 065
     Dates: start: 20221124
  2. TADALAFIL [Suspect]
     Active Substance: TADALAFIL
     Indication: Prostate cancer
     Dosage: UNK UNK, QD
     Dates: start: 20221124
  3. ORGOVYX [Suspect]
     Active Substance: RELUGOLIX
     Indication: Prostate cancer
     Dosage: 360MILLIGRAM
     Route: 048
     Dates: start: 20221123, end: 20221123
  4. ORGOVYX [Suspect]
     Active Substance: RELUGOLIX
     Dosage: 120MG, DAILY
     Route: 048
     Dates: start: 20221124
  5. HYZAAR [Concomitant]
     Active Substance: HYDROCHLOROTHIAZIDE\LOSARTAN POTASSIUM
     Indication: Blood pressure abnormal
     Dosage: UNK
     Dates: start: 20220915

REACTIONS (1)
  - Dizziness postural [Unknown]
